FAERS Safety Report 14107744 (Version 1)
Quarter: 2017Q4

REPORT INFORMATION
  Report Type: Spontaneous
  Country: FR (occurrence: FR)
  Receive Date: 20171019
  Receipt Date: 20171019
  Transmission Date: 20180321
  Serious: Yes (Other)
  Sender: FDA-Public Use
  Company Number: FR-MERCK KGAA-2030727

PATIENT
  Age: 84 Year
  Sex: Male

DRUGS (4)
  1. CORDARONE [Concomitant]
     Active Substance: AMIODARONE HYDROCHLORIDE
  2. NOVOTHYROX [Suspect]
     Active Substance: LEVOTHYROXINE SODIUM
     Indication: THYROID DISORDER
  3. PREVISCAN (FLUINDIONE) [Concomitant]
     Active Substance: FLUINDIONE
  4. NOVOTHYROX [Suspect]
     Active Substance: LEVOTHYROXINE SODIUM
     Dates: start: 2017, end: 201708

REACTIONS (2)
  - Dyspnoea [None]
  - Cardiac disorder [None]

NARRATIVE: CASE EVENT DATE: 201709
